FAERS Safety Report 4406642-1 (Version None)
Quarter: 2004Q3

REPORT INFORMATION
  Report Type: 
  Country: None (occurrence: None)
  Receive Date: 20040716
  Receipt Date: 20030901
  Transmission Date: 20050211
  Serious: Yes (Other)
  Sender: FDA-Public Use
  Company Number: DRON00204002327

PATIENT
  Age: 50 Year
  Sex: Female
  Weight: 63 kg

DRUGS (7)
  1. MARINOL [Suspect]
     Indication: MULTIPLE SCLEROSIS
     Dosage: 2.5 MG BID, PO
     Route: 048
     Dates: start: 20011114, end: 20011115
  2. MARINOL [Suspect]
     Indication: MUSCLE SPASTICITY
     Dosage: 2.5 MG BID, PO
     Route: 048
     Dates: start: 20011114, end: 20011115
  3. MARINOL [Suspect]
     Indication: MULTIPLE SCLEROSIS
     Dosage: 2.5 MG BID, PO
     Route: 048
     Dates: end: 20011207
  4. MARINOL [Suspect]
     Indication: MUSCLE SPASTICITY
     Dosage: 2.5 MG BID, PO
     Route: 048
     Dates: end: 20011207
  5. AMITRIPYTLINE (AMITRIPTYLINE) [Suspect]
     Indication: SEDATION
     Dosage: 200 MG DAILY PO
     Route: 048
     Dates: start: 19950101, end: 20011115
  6. BACLOFEN [Suspect]
     Indication: MUSCLE SPASTICITY
     Dosage: 70 MG DAILY PO
     Route: 048
     Dates: start: 19990101
  7. TIZANIDINE (TIZANIDINE) [Suspect]
     Indication: MUSCLE SPASTICITY
     Dosage: 32 MG DAILY PO
     Route: 048
     Dates: start: 19990101

REACTIONS (4)
  - CIRCULATORY COLLAPSE [None]
  - CONFUSIONAL STATE [None]
  - SOMNOLENCE [None]
  - SPEECH DISORDER [None]
